FAERS Safety Report 9783999 (Version 2)
Quarter: 2014Q1

REPORT INFORMATION
  Report Type: Spontaneous
  Country: CL (occurrence: CL)
  Receive Date: 20131226
  Receipt Date: 20140117
  Transmission Date: 20141002
  Serious: Yes (Other)
  Sender: FDA-Public Use
  Company Number: CL-PFIZER INC-2013364764

PATIENT
  Age: 79 Year
  Sex: Female

DRUGS (7)
  1. XALATAN [Suspect]
     Dosage: 1 DF, 1X/DAY
     Route: 047
     Dates: start: 2009
  2. AMLODIPINE BESILATE [Concomitant]
     Dosage: 5 MG, 1X/DAY
  3. NASTIZOL [Concomitant]
     Dosage: UNK
  4. LOVASTATIN [Concomitant]
     Dosage: 20 MG, 1X/DAY
  5. LOSARTAN [Concomitant]
     Dosage: 50 MG, 2X/DAY
  6. CHLORPHENAMINE MALEATE [Concomitant]
     Dosage: UNK
  7. ARTIFICIAL TEARS [Concomitant]

REACTIONS (3)
  - Angiopathy [Recovered/Resolved]
  - Influenza [Recovered/Resolved]
  - Hypersensitivity [Recovered/Resolved]
